FAERS Safety Report 6376126-2 (Version None)
Quarter: 2009Q3

REPORT INFORMATION
  Report Type: 
  Country: None (occurrence: None)
  Receive Date: 20090918
  Receipt Date: 20090904
  Transmission Date: 20100115
  Serious: Yes (Death)
  Sender: FDA-Public Use
  Company Number: 377362

PATIENT
  Age: 29 Year
  Sex: Female

DRUGS (8)
  1. MORPHINE [Suspect]
     Indication: MIGRAINE
     Dosage: 30 MG, INTRAMUSCULAR
     Route: 030
  2. METOCLOPRAMIDE [Suspect]
     Indication: NAUSEA
     Dosage: INTRAMUSCULAR
     Route: 030
  3. METOCLOPRAMIDE [Suspect]
     Indication: VOMITING
     Dosage: INTRAMUSCULAR
     Route: 030
  4. PROCHLORPERAZINE [Suspect]
     Indication: NAUSEA
     Dosage: INTRAMUSCULAR
     Route: 030
  5. PROCHLORPERAZINE [Suspect]
     Indication: VOMITING
     Dosage: INTRAMUSCULAR
     Route: 030
  6. PROCAINE PENICILLIN      /00026701/) [Concomitant]
  7. PHENOXYMETHYLPENICILLIN [Concomitant]
  8. IBUPROFEN [Concomitant]

REACTIONS (9)
  - BRAIN OEDEMA [None]
  - HEADACHE [None]
  - LYMPHADENOPATHY [None]
  - OVERDOSE [None]
  - RESPIRATORY ARREST [None]
  - SPLENOMEGALY [None]
  - THERAPEUTIC AGENT TOXICITY [None]
  - UPPER AIRWAY OBSTRUCTION [None]
  - VOMITING [None]
